FAERS Safety Report 5599093-8 (Version None)
Quarter: 2008Q1

REPORT INFORMATION
  Report Type: 
  Country: None (occurrence: None)
  Receive Date: 20080122
  Receipt Date: 20080102
  Transmission Date: 20080703
  Serious: No
  Sender: FDA-Public Use
  Company Number: US-BOEHRINGER INGELHEIM PHARMACEUTICALS, INC.-2008-BP-00148BP

PATIENT
  Age: 71 Year
  Sex: Male

DRUGS (6)
  1. FLOMAX [Suspect]
     Indication: NOCTURIA
     Route: 048
     Dates: start: 20070101
  2. FLOMAX [Suspect]
     Indication: BENIGN PROSTATIC HYPERPLASIA
  3. ZOCOR [Concomitant]
  4. LEVOTHYROXINE SODIUM [Concomitant]
  5. NASONEX [Concomitant]
  6. ZYRTEC [Concomitant]

REACTIONS (2)
  - MIDDLE INSOMNIA [None]
  - NOCTURIA [None]
